FAERS Safety Report 15990102 (Version 1)
Quarter: 2019Q1

REPORT INFORMATION
  Report Type: Spontaneous
  Country: US (occurrence: US)
  Receive Date: 20190221
  Receipt Date: 20190221
  Transmission Date: 20190418
  Serious: No
  Sender: FDA-Public Use
  Company Number: US-PFIZER INC-2019073992

PATIENT
  Age: 25 Year
  Sex: Female

DRUGS (2)
  1. GENOTROPIN [Suspect]
     Active Substance: SOMATROPIN
     Indication: PRADER-WILLI SYNDROME
     Dosage: 0.5 MG, DAILY
     Dates: start: 20121109
  2. GENOTROPIN [Suspect]
     Active Substance: SOMATROPIN
     Indication: MUSCULAR WEAKNESS

REACTIONS (1)
  - Insulin-like growth factor decreased [Unknown]

NARRATIVE: CASE EVENT DATE: 20171027
